FAERS Safety Report 5974980-7 (Version None)
Quarter: 2008Q4

REPORT INFORMATION
  Report Type: 
  Country: None (occurrence: None)
  Receive Date: 20081128
  Receipt Date: 20081111
  Transmission Date: 20090506
  Serious: Yes (Hospitalization)
  Sender: FDA-Public Use
  Company Number: DSA_32688_2008

PATIENT
  Sex: Female

DRUGS (3)
  1. LORAZEPAM [Suspect]
     Indication: ANXIETY
     Dosage: SLOW DOSE REDUCTION TO 1 MG DAILY ORAL; 0.5 MG QD ORAL
     Route: 048
     Dates: start: 19790101, end: 20060101
  2. LORAZEPAM [Suspect]
     Indication: ANXIETY
     Dosage: SLOW DOSE REDUCTION TO 1 MG DAILY ORAL; 0.5 MG QD ORAL
     Route: 048
     Dates: start: 20060101, end: 20080522
  3. DOCITON (DOCITON - PROPRANOLOL HYDROCHLORIDE) (NOT SPECIFIED) [Suspect]
     Indication: DRUG USE FOR UNKNOWN INDICATION
     Dosage: DF ORAL
     Route: 048
     Dates: end: 20070901

REACTIONS (6)
  - ANXIETY [None]
  - BLOOD PRESSURE INCREASED [None]
  - DEPRESSION [None]
  - DRUG DEPENDENCE [None]
  - DRUG WITHDRAWAL SYNDROME [None]
  - TREMOR [None]
